FAERS Safety Report 7692148-3 (Version None)
Quarter: 2011Q3

REPORT INFORMATION
  Report Type: 
  Country: None (occurrence: None)
  Receive Date: 20110818
  Receipt Date: 20110809
  Transmission Date: 20111222
  Serious: Yes (Hospitalization)
  Sender: FDA-Public Use
  Company Number: US-ASTRAZENECA-2010SE44412

PATIENT
  Age: 74 Year
  Sex: Female

DRUGS (2)
  1. ARIMIDEX [Suspect]
     Route: 048
  2. ANASTROZOLE [Suspect]
     Dosage: GENERIC
     Route: 065

REACTIONS (10)
  - MALIGNANT BREAST LUMP REMOVAL [None]
  - ECZEMA [None]
  - SKIN PAPILLOMA [None]
  - BREAST CANCER [None]
  - LUNG DISORDER [None]
  - BENIGN NEOPLASM OF EYE [None]
  - MASTECTOMY [None]
  - DERMATITIS CONTACT [None]
  - DYSPNOEA [None]
  - MALAISE [None]
